FAERS Safety Report 10547579 (Version 1)
Quarter: 2014Q4

REPORT INFORMATION
  Report Type: Spontaneous
  Country: US (occurrence: None)
  Receive Date: 20141010
  Receipt Date: 20141010
  Transmission Date: 20150529
  Serious: Yes (Hospitalization)
  Sender: FDA-Public Use
  Company Number: 163-POMAL-14061944

PATIENT
  Age: 42 Year
  Sex: Male

DRUGS (16)
  1. POMALYST [Suspect]
     Active Substance: POMALIDOMIDE
     Indication: PLASMA CELL MYELOMA
     Route: 048
     Dates: start: 20140521, end: 20140603
  2. RANITIDINE [Concomitant]
     Active Substance: RANITIDINE\RANITIDINE HYDROCHLORIDE
  3. ZOLPIDEM [Concomitant]
     Active Substance: ZOLPIDEM\ZOLPIDEM TARTRATE
  4. ACYCLOVIR (ACICLOVIR) (ACICLOVIR) [Concomitant]
     Active Substance: ACYCLOVIR
  5. DEXAMETHASONE. [Concomitant]
     Active Substance: DEXAMETHASONE
  6. ENALAPRIL [Concomitant]
     Active Substance: ENALAPRIL
  7. HYDROCODONE/ APAP (REMEDEINE) [Concomitant]
  8. ASPIRIN. [Concomitant]
     Active Substance: ASPIRIN
  9. GABAPENTIN. [Concomitant]
     Active Substance: GABAPENTIN
  10. CEFUROXIME. [Concomitant]
     Active Substance: CEFUROXIME
  11. VITAMIN D (ERGOCALCIFEROL) [Concomitant]
     Active Substance: ERGOCALCIFEROL
  12. POTASSIUM CITRATE. [Concomitant]
     Active Substance: POTASSIUM CITRATE
  13. FUROSEMIDE. [Concomitant]
     Active Substance: FUROSEMIDE
  14. TRAZODONE [Concomitant]
     Active Substance: TRAZODONE HYDROCHLORIDE
  15. MUCINEX D [Concomitant]
     Active Substance: GUAIFENESIN\PSEUDOEPHEDRINE HYDROCHLORIDE
  16. ORAP (PIMOZIDE) [Concomitant]

REACTIONS (3)
  - Acute kidney injury [None]
  - Dehydration [None]
  - Pyrexia [None]

NARRATIVE: CASE EVENT DATE: 20140603
